FAERS Safety Report 8974150 (Version 1)
Quarter: 2012Q4

REPORT INFORMATION
  Report Type: Spontaneous
  Country: FR (occurrence: None)
  Receive Date: 20121213
  Receipt Date: 20121213
  Transmission Date: 20130627
  Serious: Yes (Hospitalization)
  Sender: FDA-Public Use
  Company Number: FR-1195612

PATIENT
  Age: 60 Year
  Sex: Female

DRUGS (10)
  1. VEXOL [Suspect]
     Dosage: 5x/day
     Route: 047
     Dates: start: 20120917, end: 20121017
  2. CORTANCYL [Suspect]
     Route: 048
     Dates: start: 20120917, end: 20120925
  3. CORTANCYL [Suspect]
     Route: 048
     Dates: start: 20120925, end: 20121003
  4. CORTANCYL [Suspect]
     Route: 048
     Dates: start: 20121003, end: 20121007
  5. CORTANCYL [Suspect]
     Route: 048
     Dates: start: 20121007, end: 20121010
  6. AZITHROMYCIN [Suspect]
     Route: 048
     Dates: start: 20120917, end: 20121030
  7. MALOCIDE [Suspect]
     Route: 048
     Dates: start: 20120917
  8. MALOCIDE [Suspect]
     Route: 048
     Dates: end: 20121030
  9. CARTEOL [Suspect]
     Dates: start: 20120917, end: 20121017
  10. MYDRIATICUM [Suspect]
     Route: 047
     Dates: start: 20120917, end: 20120924

REACTIONS (1)
  - Intracranial pressure increased [None]
